FAERS Safety Report 6774389-2 (Version None)
Quarter: 2010Q2

REPORT INFORMATION
  Report Type: 
  Country: None (occurrence: None)
  Receive Date: 20100617
  Receipt Date: 20100610
  Transmission Date: 20101027
  Serious: Yes (Hospitalization)
  Sender: FDA-Public Use
  Company Number: CO-JNJFOC-20100603805

PATIENT
  Age: 49 Year
  Sex: Male

DRUGS (2)
  1. RISPERIDONE [Suspect]
     Indication: BIPOLAR DISORDER
     Route: 065
  2. ALCOHOL [Suspect]
     Indication: DRUG USE FOR UNKNOWN INDICATION
     Route: 065

REACTIONS (4)
  - ANXIETY [None]
  - GENERAL PHYSICAL HEALTH DETERIORATION [None]
  - IMPATIENCE [None]
  - INCORRECT DOSE ADMINISTERED [None]
